FAERS Safety Report 8374502-X (Version None)
Quarter: 2012Q2

REPORT INFORMATION
  Report Type: 
  Country: None (occurrence: None)
  Receive Date: 20120521
  Receipt Date: 20120507
  Transmission Date: 20120825
  Serious: Yes (Other)
  Sender: FDA-Public Use
  Company Number: US-JNJFOC-20120508235

PATIENT
  Sex: Male
  Weight: 97.52 kg

DRUGS (3)
  1. ZOFRAN [Concomitant]
     Indication: NAUSEA
     Route: 065
     Dates: start: 20090101
  2. REMICADE [Suspect]
     Indication: CROHN'S DISEASE
     Route: 042
     Dates: start: 20120409
  3. REMICADE [Suspect]
     Route: 042
     Dates: start: 20110501, end: 20120401

REACTIONS (7)
  - MALAISE [None]
  - HYPERHIDROSIS [None]
  - HOT FLUSH [None]
  - LOSS OF CONSCIOUSNESS [None]
  - INFLUENZA [None]
  - GASTROINTESTINAL OEDEMA [None]
  - CROHN'S DISEASE [None]
